FAERS Safety Report 8438193 (Version 6)
Quarter: 2012Q4

REPORT INFORMATION
  Report Type: 
  Country: TH (occurrence: US)
  Receive Date: 20120302
  Receipt Date: 20121029
  Transmission Date: 20130627
  Serious: Yes (Hospitalization, Other)
  Sender: FDA-Public Use
  Company Number: US-009507513-1202USA04361

PATIENT

DRUGS (5)
  1. FOSAMAX [Suspect]
     Indication: OSTEOPOROSIS
     Dosage: 70 mg, qw
     Route: 048
     Dates: start: 2001
  2. FOSAMAX [Suspect]
     Indication: OSTEOPENIA
  3. ALENDRONATE SODIUM [Suspect]
     Indication: OSTEOPOROSIS
     Dosage: 70 mg, qw
     Dates: start: 200803, end: 20110222
  4. FOSAMAX [Suspect]
     Indication: OSTEOPENIA
     Dosage: 70 mg, qw
     Route: 048
  5. FOSAMAX [Suspect]
     Indication: OSTEOPOROSIS

REACTIONS (22)
  - Femur fracture [Unknown]
  - Open reduction of fracture [Unknown]
  - Device failure [Unknown]
  - Femur fracture [Unknown]
  - Open reduction of fracture [Unknown]
  - Synovitis [Unknown]
  - Synovectomy [Unknown]
  - Patellofemoral pain syndrome [Unknown]
  - Chondroplasty [Unknown]
  - Bone trimming [Unknown]
  - Osteonecrosis of jaw [Unknown]
  - Fracture delayed union [Unknown]
  - Foot fracture [Unknown]
  - Vitamin D deficiency [Unknown]
  - Tooth extraction [Unknown]
  - Dyslipidaemia [Unknown]
  - Limb asymmetry [Unknown]
  - Gait disturbance [Unknown]
  - Arthritis [Unknown]
  - Urinary incontinence [Unknown]
  - Tooth extraction [Unknown]
  - Arthralgia [Recovering/Resolving]
